FAERS Safety Report 6233571-3 (Version None)
Quarter: 2009Q2

REPORT INFORMATION
  Report Type: 
  Country: None (occurrence: None)
  Receive Date: 20090617
  Receipt Date: 20090611
  Transmission Date: 20091009
  Serious: Yes (Hospitalization)
  Sender: FDA-Public Use
  Company Number: ES-TEVA-170748ISR

PATIENT
  Sex: Female
  Weight: 75 kg

DRUGS (6)
  1. FLUOROURACIL [Suspect]
     Indication: COLORECTAL CANCER METASTATIC
     Route: 040
     Dates: start: 20080101, end: 20080414
  2. FLUOROURACIL [Suspect]
     Route: 041
     Dates: start: 20080101
  3. FOLINIC ACID [Suspect]
     Indication: COLORECTAL CANCER METASTATIC
     Route: 040
     Dates: start: 20080101, end: 20080414
  4. IRINOTECAN HCL [Suspect]
     Indication: COLORECTAL CANCER METASTATIC
     Route: 042
     Dates: start: 20080101, end: 20080414
  5. SUNITINIB (BLINDED THERAPY) [Suspect]
     Dates: end: 20080414
  6. IRON [Suspect]
     Route: 048
     Dates: start: 20080215

REACTIONS (2)
  - CARDIAC FAILURE [None]
  - PULMONARY EMBOLISM [None]
